FAERS Safety Report 15214718 (Version 1)
Quarter: 2018Q3

REPORT INFORMATION
  Report Type: Spontaneous
  Country: JP (occurrence: JP)
  Receive Date: 20180730
  Receipt Date: 20180730
  Transmission Date: 20181010
  Serious: Yes (Other)
  Sender: FDA-Public Use
  Company Number: JP-GLAXOSMITHKLINE-JP2018JPN130942

PATIENT
  Sex: Male

DRUGS (3)
  1. URIEF [Concomitant]
     Active Substance: SILODOSIN
     Indication: BLADDER DILATATION
     Dosage: UNK
     Route: 048
  2. RIZE (JAPAN) [Concomitant]
     Dosage: UNK
     Route: 065
  3. AVOLVE [Suspect]
     Active Substance: DUTASTERIDE
     Indication: BLADDER DILATATION
     Dosage: UNK
     Route: 048

REACTIONS (2)
  - Product use in unapproved indication [Unknown]
  - Urinary retention [Unknown]
